FAERS Safety Report 11778667 (Version 1)
Quarter: 2015Q4

REPORT INFORMATION
  Report Type: Spontaneous
  Country: US (occurrence: US)
  Receive Date: 20151125
  Receipt Date: 20151125
  Transmission Date: 20160304
  Serious: Yes (Death)
  Sender: FDA-Public Use
  Company Number: US-PFIZER INC-2015401510

PATIENT
  Age: 64 Year
  Sex: Male
  Weight: 71.76 kg

DRUGS (7)
  1. AVASTIN [Concomitant]
     Active Substance: BEVACIZUMAB
     Indication: COLON CANCER
     Dosage: 375 MG
     Dates: start: 20150707, end: 20150915
  2. LEUCOVORIN. [Concomitant]
     Active Substance: LEUCOVORIN
     Indication: COLON CANCER
     Dosage: 750 MG
     Dates: start: 20150707, end: 20150915
  3. CAMPTOSAR [Suspect]
     Active Substance: IRINOTECAN HYDROCHLORIDE
     Indication: SMALL CELL LUNG CANCER
     Dosage: 330 MG, CYCLIC
     Route: 042
     Dates: start: 20150707, end: 20150915
  4. AVASTIN [Concomitant]
     Active Substance: BEVACIZUMAB
     Dosage: 375 MG WAS THE 1ST DOSE AND IT GRADUALLY WENT DOWN
     Dates: end: 20150915
  5. 5-FU [Concomitant]
     Active Substance: FLUOROURACIL
     Indication: COLON CANCER
     Dosage: 5325 MG
     Dates: start: 20150707, end: 20150915
  6. ZOFRAN [Concomitant]
     Active Substance: ONDANSETRON HYDROCHLORIDE
     Indication: NAUSEA
     Dosage: 16 MG
     Dates: start: 20150707, end: 20150915
  7. ZOFRAN [Concomitant]
     Active Substance: ONDANSETRON HYDROCHLORIDE
     Indication: VOMITING

REACTIONS (2)
  - Death [Fatal]
  - Product use issue [Unknown]
